FAERS Safety Report 7099470-2 (Version None)
Quarter: 2010Q4

REPORT INFORMATION
  Report Type: 
  Country: None (occurrence: None)
  Receive Date: 20101105
  Receipt Date: 20101029
  Transmission Date: 20110411
  Serious: Yes (Other)
  Sender: FDA-Public Use
  Company Number: 2010-3560

PATIENT
  Age: 17 Year
  Sex: Male

DRUGS (3)
  1. INCRELEX [Suspect]
     Indication: ANTIBODY TEST ABNORMAL
     Dosage: 0.16 MG/KG (0.08 MG/KG,2 IN 1 D)
     Dates: start: 20090730
  2. INCRELEX [Suspect]
     Indication: BLOOD GROWTH HORMONE ABNORMAL
     Dosage: 0.16 MG/KG (0.08 MG/KG,2 IN 1 D)
     Dates: start: 20090730
  3. GROWTH HORMONE (NOS) (SOMATROPIN) [Concomitant]

REACTIONS (1)
  - PSYCHIATRIC SYMPTOM [None]
